FAERS Safety Report 13756171 (Version 2)
Quarter: 2017Q3

REPORT INFORMATION
  Report Type: Report from Study
  Country: US (occurrence: US)
  Receive Date: 20170714
  Receipt Date: 20170723
  Transmission Date: 20171127
  Serious: Yes (Other)
  Sender: FDA-Public Use
  Company Number: US-CIPLA LTD.-2017US12092

PATIENT

DRUGS (7)
  1. LEUCOVORIN. [Suspect]
     Active Substance: LEUCOVORIN
     Indication: PANCREATIC CARCINOMA METASTATIC
     Dosage: 400 MG/M2, AS A 90-MIN INTRAVENOUS INFUSION IMMEDIATELY AFTER OXALIPLATIN ON DAYS 1-3 OF EACH 2 WEEK
     Route: 042
  2. OXALIPLATIN. [Suspect]
     Active Substance: OXALIPLATIN
     Indication: PANCREATIC CARCINOMA
     Dosage: 65 MG/M2, GIVEN AS A 2-H INTRAVENOUS INFUSION ON DAYS 1-3 OF EACH 2 WEEK CYCLE
     Route: 042
  3. FLUOROURACIL. [Suspect]
     Active Substance: FLUOROURACIL
     Dosage: 2400 MG/M2, OVER 46 H AS CONTINUOUS INTRAVENOUS INFUSION ON DAYS 1-3 OF EACH 2 WEEK CYCLE
     Route: 042
  4. FLUOROURACIL. [Suspect]
     Active Substance: FLUOROURACIL
     Indication: PANCREATIC CARCINOMA METASTATIC
     Dosage: 400 MG/M2 BOLUS
     Route: 042
  5. CPI-613 [Suspect]
     Active Substance: INVESTIGATIONAL PRODUCT
     Indication: PANCREATIC CARCINOMA
     Dosage: 500 MG/M2 PER DAY, AT A RATE OF 4ML/MINUTE ON DAY 1 AND 3 OF EACH TWO WEEK CYCLE
     Route: 065
  6. IRINOTECAN [Suspect]
     Active Substance: IRINOTECAN
     Indication: PANCREATIC CARCINOMA METASTATIC
     Dosage: 140 MG/M2, AS A 90 MINUTE INTRAVENOUS INFUSION ON DAYS 1-3 OF EACH 2 WEEK CYCLE
     Route: 042
  7. PEGFILGRASTIM [Concomitant]
     Active Substance: PEGFILGRASTIM
     Indication: SUPPORTIVE CARE
     Dosage: 6MG/0.6ML, ON DAY 4 OF EACH 2 WEEK CYCLE
     Route: 065

REACTIONS (3)
  - Sepsis [Unknown]
  - Hypoalbuminaemia [Unknown]
  - Hypokalaemia [Unknown]
